FAERS Safety Report 5093495-4 (Version None)
Quarter: 2006Q3

REPORT INFORMATION
  Report Type: 
  Country: None (occurrence: None)
  Receive Date: 20060829
  Receipt Date: 20060816
  Transmission Date: 20061208
  Serious: Yes (Disabling, Other)
  Sender: FDA-Public Use
  Company Number: 2006093373

PATIENT
  Age: 54 Year
  Sex: Male
  Weight: 99.7913 kg

DRUGS (10)
  1. LYRICA [Suspect]
     Indication: PROCEDURAL PAIN
     Dosage: 150 MG (75 MG, 2 IN 1 D),
     Dates: start: 20060701, end: 20060704
  2. ALL OTHER THERAPEUTIC PRODUCTS (ALL OTHER THERAPEUTIC PRODUCTS) [Concomitant]
  3. LEVOTHYROXINE SODIUM [Concomitant]
  4. SPIRONOLACTONE [Concomitant]
  5. CLONIDINE [Concomitant]
  6. LOVASTATIN [Concomitant]
  7. FUROSEMIDE [Concomitant]
  8. PAXIL [Concomitant]
  9. XANAX [Concomitant]
  10. INSULIN [Concomitant]

REACTIONS (12)
  - ARTHRITIS [None]
  - BLINDNESS [None]
  - DRUG INEFFECTIVE [None]
  - EYE DISORDER [None]
  - EYE HAEMORRHAGE [None]
  - LACRIMATION INCREASED [None]
  - NERVE INJURY [None]
  - OCULAR VASCULAR DISORDER [None]
  - RETINAL DETACHMENT [None]
  - RETINAL DISORDER [None]
  - VISION BLURRED [None]
  - VISUAL DISTURBANCE [None]
